FAERS Safety Report 7104697-7 (Version None)
Quarter: 2010Q4

REPORT INFORMATION
  Report Type: 
  Country: None (occurrence: None)
  Receive Date: 20101116
  Receipt Date: 20100927
  Transmission Date: 20110411
  Serious: Yes (Other)
  Sender: FDA-Public Use
  Company Number: US-BAYER-201027821NA

PATIENT
  Age: 29 Year
  Sex: Female
  Weight: 70 kg

DRUGS (4)
  1. YAZ [Suspect]
     Indication: CONTRACEPTION
     Route: 048
     Dates: start: 20071208, end: 20080914
  2. SINGULAIR [Concomitant]
     Indication: ASTHMA
     Dates: start: 20050501
  3. ZYRTEC [Concomitant]
     Indication: MULTIPLE ALLERGIES
     Dates: start: 20071001
  4. ADVAIR DISKUS 100/50 [Concomitant]

REACTIONS (3)
  - CEREBROVASCULAR ACCIDENT [None]
  - DIZZINESS [None]
  - HEADACHE [None]
